FAERS Safety Report 5968067-7 (Version None)
Quarter: 2008Q4

REPORT INFORMATION
  Report Type: 
  Country: None (occurrence: None)
  Receive Date: 20081121
  Receipt Date: 20081106
  Transmission Date: 20090506
  Serious: Yes (Life-Threatening, Hospitalization)
  Sender: FDA-Public Use
  Company Number: 2008S1020416

PATIENT
  Age: 51 Year
  Sex: Male

DRUGS (4)
  1. CLOMIPRAMINE HCL [Suspect]
     Indication: DEPRESSION
     Dosage: 75 MG; DAILY;
  2. OLANZAPINE [Suspect]
     Indication: DEPRESSION
     Dosage: 20 MG; DAILY;
  3. CANDESARTAN [Concomitant]
  4. INSULIN [Concomitant]

REACTIONS (23)
  - ABDOMINAL DISTENSION [None]
  - ABDOMINAL RIGIDITY [None]
  - ALANINE AMINOTRANSFERASE INCREASED [None]
  - ASPARTATE AMINOTRANSFERASE INCREASED [None]
  - BLOOD CALCIUM DECREASED [None]
  - BLOOD CHLORIDE INCREASED [None]
  - BLOOD CREATINE PHOSPHOKINASE INCREASED [None]
  - BLOOD CREATININE INCREASED [None]
  - BLOOD GLUCOSE DECREASED [None]
  - BLOOD LACTATE DEHYDROGENASE INCREASED [None]
  - BLOOD SODIUM DECREASED [None]
  - BLOOD UREA INCREASED [None]
  - COMA [None]
  - DIARRHOEA [None]
  - FLATULENCE [None]
  - GASTROENTERITIS [None]
  - HYPERGLYCAEMIA [None]
  - HYPERREFLEXIA [None]
  - METABOLIC ACIDOSIS [None]
  - NEUTROPHILIA [None]
  - NUCHAL RIGIDITY [None]
  - SEROTONIN SYNDROME [None]
  - TONGUE DRY [None]
